FAERS Safety Report 20231942 (Version 3)
Quarter: 2022Q1

REPORT INFORMATION
  Report Type: Report from Study
  Country: US (occurrence: US)
  Receive Date: 20211227
  Receipt Date: 20220216
  Transmission Date: 20220423
  Serious: Yes (Other)
  Sender: FDA-Public Use
  Company Number: US-NOVARTISPH-NVSC2021US204178

PATIENT
  Age: 60 Year
  Sex: Female

DRUGS (1)
  1. KESIMPTA [Suspect]
     Active Substance: OFATUMUMAB
     Indication: Multiple sclerosis
     Dosage: 20 MG
     Route: 058

REACTIONS (7)
  - Appendicitis [Unknown]
  - Myocardial infarction [Unknown]
  - Pain [Unknown]
  - Abdominal pain upper [Unknown]
  - Back pain [Unknown]
  - Limb injury [Unknown]
  - Wound infection [Unknown]

NARRATIVE: CASE EVENT DATE: 20211106
